FAERS Safety Report 8518103 (Version 7)
Quarter: 2015Q2

REPORT INFORMATION
  Report Type: Spontaneous
  Country: US (occurrence: US)
  Receive Date: 20120417
  Receipt Date: 20150605
  Transmission Date: 20150821
  Serious: Yes (Other)
  Sender: FDA-Public Use
  Company Number: US-ASTRAZENECA-2012SE10617

PATIENT
  Age: 80 Year
  Sex: Male
  Weight: 82.6 kg

DRUGS (15)
  1. NEXIUM [Suspect]
     Active Substance: ESOMEPRAZOLE MAGNESIUM
     Indication: OESOPHAGEAL ULCER
     Dosage: 40 MG DAILY, TAKING NEXIUM 30 MINUTES BEFORE A MEAL
     Route: 048
     Dates: start: 2010
  2. INSULIN [Concomitant]
     Active Substance: INSULIN NOS
     Indication: DIABETES MELLITUS
     Dosage: 70, 30, 40 DAILY
     Route: 058
  3. HIGH BLOOD PRESSURE MEDICATION [Concomitant]
     Active Substance: UNSPECIFIED INGREDIENT
  4. METOPROLOL ER SUCCINATE [Suspect]
     Active Substance: METOPROLOL SUCCINATE
     Route: 048
  5. OXYBUTYNIN [Concomitant]
     Active Substance: OXYBUTYNIN
     Indication: BLADDER DISORDER
     Route: 048
  6. ASPIRIN. [Concomitant]
     Active Substance: ASPIRIN
     Dosage: AS REQUIRED
  7. NEXIUM [Suspect]
     Active Substance: ESOMEPRAZOLE MAGNESIUM
     Indication: PHARYNGEAL ULCERATION
     Dosage: 40 MG DAILY, TAKING NEXIUM 30 MINUTES BEFORE A MEAL
     Route: 048
     Dates: start: 2010
  8. NEXIUM [Suspect]
     Active Substance: ESOMEPRAZOLE MAGNESIUM
     Indication: GASTROOESOPHAGEAL REFLUX DISEASE
     Dosage: 40 MG DAILY, TAKING NEXIUM 30 MINUTES BEFORE A MEAL
     Route: 048
     Dates: start: 2010
  9. AMLODIPINE [Concomitant]
     Active Substance: AMLODIPINE BESYLATE
     Indication: HYPERTENSION
     Route: 048
  10. METOPROLOL [Concomitant]
     Active Substance: METOPROLOL
     Indication: HYPERTENSION
     Route: 048
  11. LISINOPRIL. [Concomitant]
     Active Substance: LISINOPRIL
     Indication: HYPERTENSION
     Route: 048
  12. METFORMIN [Concomitant]
     Active Substance: METFORMIN HYDROCHLORIDE
     Indication: DIABETES MELLITUS
     Route: 048
  13. HYDROCHLOROTHIAZIDE. [Concomitant]
     Active Substance: HYDROCHLOROTHIAZIDE
  14. AMITRIPTYLINE [Concomitant]
     Active Substance: AMITRIPTYLINE
     Indication: MUSCLE SPASMS
     Route: 048
  15. TAMSULOSIN [Concomitant]
     Active Substance: TAMSULOSIN
     Indication: BLADDER DISORDER

REACTIONS (15)
  - Cough [Unknown]
  - Gastrointestinal disorder [Unknown]
  - Ulcer [Unknown]
  - Vomiting [Unknown]
  - Diabetes mellitus [None]
  - Memory impairment [Unknown]
  - Influenza [Unknown]
  - Haemorrhage [Unknown]
  - Oesophageal obstruction [Unknown]
  - Visual impairment [Not Recovered/Not Resolved]
  - Malaise [Unknown]
  - Off label use [Unknown]
  - Dysphagia [Unknown]
  - Lacrimation increased [Unknown]
  - Intentional product misuse [Unknown]

NARRATIVE: CASE EVENT DATE: 1995
